FAERS Safety Report 19130197 (Version 4)
Quarter: 2021Q3

REPORT INFORMATION
  Report Type: Spontaneous
  Country: CA (occurrence: CA)
  Receive Date: 20210414
  Receipt Date: 20210814
  Transmission Date: 20211014
  Serious: Yes (Other)
  Sender: FDA-Public Use
  Company Number: CA-CELLTRION INC.-2021CA003120

PATIENT

DRUGS (11)
  1. INFLECTRA [Suspect]
     Active Substance: INFLIXIMAB-DYYB
     Indication: CROHN^S DISEASE
     Dosage: 400MG Q 0, 2, 6 WEEK THEN EVERY 8 WEEKS
     Route: 042
  2. INFLECTRA [Suspect]
     Active Substance: INFLIXIMAB-DYYB
     Dosage: 400MG Q 0, 2, 6 WEEK THEN EVERY 8 WEEKS
     Route: 042
     Dates: start: 20210611
  3. INFLECTRA [Suspect]
     Active Substance: INFLIXIMAB-DYYB
     Dosage: 400MG Q 0, 2, 6 WEEK THEN EVERY 8 WEEKS
     Route: 042
     Dates: start: 20210409
  4. INFLECTRA [Suspect]
     Active Substance: INFLIXIMAB-DYYB
     Dosage: 400MG Q 0, 2, 6 WEEK THEN EVERY 8 WEEKS
     Route: 042
     Dates: start: 20210226
  5. INFLECTRA [Suspect]
     Active Substance: INFLIXIMAB-DYYB
     Dosage: 400MG Q 0, 2, 6 WEEK THEN EVERY 8 WEEKS
     Route: 042
     Dates: start: 20210315
  6. CIPROFLOXACIN. [Concomitant]
     Active Substance: CIPROFLOXACIN
     Dosage: 500 MG, 2X/DAY
     Route: 065
  7. FLAGYL [METRONIDAZOLE BENZOATE] [Concomitant]
     Active Substance: METRONIDAZOLE BENZOATE
     Dosage: 250 MG, 2X/DAY
  8. INFLECTRA [Suspect]
     Active Substance: INFLIXIMAB-DYYB
     Dosage: 400MG Q 0, 2, 6 WEEK THEN EVERY 8 WEEKS
     Route: 042
     Dates: start: 20210315
  9. INFLECTRA [Suspect]
     Active Substance: INFLIXIMAB-DYYB
     Dosage: 400 MG, Q 0, 2, 6 WEEK THEN EVERY 8 WEEKS
     Route: 042
     Dates: start: 20210804
  10. METHOTREXATE. [Concomitant]
     Active Substance: METHOTREXATE
     Dosage: 1 ML
     Route: 058
  11. METHOTREXATE. [Concomitant]
     Active Substance: METHOTREXATE
     Indication: CROHN^S DISEASE
     Dosage: 1 DF (1ML DOSE STRENGTH AND FREQUENCY NOT PROVIDED)
     Route: 058

REACTIONS (10)
  - Anal fistula [Unknown]
  - Condition aggravated [Unknown]
  - Anal fissure [Unknown]
  - Pain [Unknown]
  - Anxiety [Unknown]
  - Fistula discharge [Unknown]
  - Haemorrhage [Unknown]
  - Off label use [Unknown]
  - Intentional product use issue [Unknown]
  - Palpitations [Unknown]

NARRATIVE: CASE EVENT DATE: 20210315
